FAERS Safety Report 7445369-9 (Version None)
Quarter: 2011Q2

REPORT INFORMATION
  Report Type: 
  Country: None (occurrence: None)
  Receive Date: 20110429
  Receipt Date: 20100311
  Transmission Date: 20111010
  Serious: No
  Sender: FDA-Public Use
  Company Number: A0850763A

PATIENT
  Age: 36 Year
  Sex: Female

DRUGS (1)
  1. ZOFRAN [Suspect]
     Indication: NAUSEA
     Dosage: 4MG SIX TIMES PER DAY
     Route: 048
     Dates: start: 20100308

REACTIONS (2)
  - HYPERGLYCAEMIA [None]
  - DRUG EXPOSURE DURING PREGNANCY [None]
